FAERS Safety Report 6381861-6 (Version None)
Quarter: 2009Q3

REPORT INFORMATION
  Report Type: 
  Country: None (occurrence: None)
  Receive Date: 20090930
  Receipt Date: 20090922
  Transmission Date: 20100115
  Serious: Yes (Other)
  Sender: FDA-Public Use
  Company Number: US-JNJFOC-20090705343

PATIENT
  Sex: Female
  Weight: 69.85 kg

DRUGS (8)
  1. ORTHO EVRA [Suspect]
     Indication: CONTRACEPTION
     Route: 062
  2. PLAVIX [Suspect]
     Indication: CEREBROVASCULAR ACCIDENT
     Route: 065
  3. ASPIRIN [Suspect]
     Indication: CEREBROVASCULAR ACCIDENT
     Dosage: '5 GR TAP'
     Route: 065
  4. EFFEXOR XR [Concomitant]
     Indication: DEPRESSION
     Route: 065
  5. LYRICA [Concomitant]
     Route: 065
  6. LYRICA [Concomitant]
     Indication: PAIN
     Route: 065
  7. PROPOXYPHENE N [Concomitant]
     Indication: PAIN
     Route: 065
  8. TYLENOL (CAPLET) [Concomitant]

REACTIONS (9)
  - CEREBROVASCULAR ACCIDENT [None]
  - DIZZINESS [None]
  - DYSPNOEA [None]
  - EPISTAXIS [None]
  - HELICOBACTER PYLORI IDENTIFICATION TEST POSITIVE [None]
  - HEMIPARESIS [None]
  - NASAL SINUS CANCER [None]
  - SKIN DISCOLOURATION [None]
  - THROMBOSIS [None]
